FAERS Safety Report 7298805-5 (Version None)
Quarter: 2011Q1

REPORT INFORMATION
  Report Type: 
  Country: None (occurrence: None)
  Receive Date: 20110207
  Receipt Date: 20110120
  Transmission Date: 20110831
  Serious: Yes (Other)
  Sender: FDA-Public Use
  Company Number: ACO_21544 _2011

PATIENT
  Age: 62 Year
  Sex: Female
  Weight: 81.6 kg

DRUGS (6)
  1. HYDROCHLOROTHIAZIDE [Concomitant]
  2. ANTIBIOTICS [Concomitant]
  3. AMPYRA [Suspect]
     Indication: GAIT DISTURBANCE
     Dosage: 10 MG, BID, ORAL
     Route: 048
     Dates: start: 20101101, end: 20101101
  4. AMANTADINE HCL [Concomitant]
  5. REBIF [Concomitant]
  6. BACLOFEN [Concomitant]

REACTIONS (1)
  - LOSS OF CONSCIOUSNESS [None]
